FAERS Safety Report 5176940-5 (Version None)
Quarter: 2006Q4

REPORT INFORMATION
  Report Type: 
  Country: None (occurrence: None)
  Receive Date: 20061212
  Receipt Date: 20061212
  Transmission Date: 20070319
  Serious: Yes (Other)
  Sender: FDA-Public Use
  Company Number: None

PATIENT
  Sex: Female
  Weight: 105.6881 kg

DRUGS (28)
  1. LUNESTA [Suspect]
     Indication: INSOMNIA
     Dosage: 3MG QHS PO
     Route: 048
     Dates: start: 20060701, end: 20061101
  2. ALTACE [Concomitant]
  3. PRANDIN [Concomitant]
  4. URECHOLINE [Concomitant]
  5. NEXIUM [Concomitant]
  6. TOPAMAX [Concomitant]
  7. MIRAPEX [Concomitant]
  8. FEMHRT [Concomitant]
  9. LASIX [Concomitant]
  10. KLOR-CON [Concomitant]
  11. ZELNORM [Concomitant]
  12. SYNTHROID [Concomitant]
  13. PANCREASE MT [Concomitant]
  14. NEURONTIN [Concomitant]
  15. GLUCOSAMINE/CHONDROITIN [Concomitant]
  16. CALCIUM [Concomitant]
  17. ESTER-C [Concomitant]
  18. MAGNESIUM [Concomitant]
  19. MSM (LIGNISUL METHYSULPHONYLMETHANE) [Concomitant]
  20. SURQLAX [Concomitant]
  21. IRON [Concomitant]
  22. SUPER B COMPLEX [Concomitant]
  23. HYDROCODONE BITARTRATE + ACETAMINOPHEN [Concomitant]
  24. IMITREX [Concomitant]
  25. FROVA [Concomitant]
  26. DIAMOX [Concomitant]
  27. ACETAZOLAMIDE [Concomitant]
  28. CENTRUM SILVER [Concomitant]

REACTIONS (2)
  - ABNORMAL SLEEP-RELATED EVENT [None]
  - SLEEP WALKING [None]
